FAERS Safety Report 5871173-9 (Version None)
Quarter: 2008Q3

REPORT INFORMATION
  Report Type: 
  Country: None (occurrence: None)
  Receive Date: 20080902
  Receipt Date: 20080819
  Transmission Date: 20090109
  Serious: Yes (Death)
  Sender: FDA-Public Use
  Company Number: 2008BI018061

PATIENT
  Age: 56 Year
  Sex: Male

DRUGS (2)
  1. TYSABRI [Suspect]
     Indication: MULTIPLE SCLEROSIS
     Dosage: 300 MG;QM;IV; 300 MG; QM; IV
     Route: 042
     Dates: start: 20070411, end: 20070607
  2. TYSABRI [Suspect]
     Indication: MULTIPLE SCLEROSIS
     Dosage: 300 MG;QM;IV; 300 MG; QM; IV
     Route: 042
     Dates: start: 20071009, end: 20071108

REACTIONS (6)
  - APNOEA [None]
  - ASTHENIA [None]
  - CARDIO-RESPIRATORY ARREST [None]
  - MALAISE [None]
  - RESPIRATORY ARREST [None]
  - URINARY TRACT INFECTION [None]
